FAERS Safety Report 17091948 (Version 1)
Quarter: 2019Q4

REPORT INFORMATION
  Report Type: Report from Study
  Country: CA (occurrence: CA)
  Receive Date: 20191129
  Receipt Date: 20191129
  Transmission Date: 20200122
  Serious: Yes (Hospitalization)
  Sender: FDA-Public Use
  Company Number: CA-PFIZER INC-2019516048

PATIENT
  Age: 67 Year
  Sex: Female
  Weight: 51 kg

DRUGS (18)
  1. AROMASIN [Suspect]
     Active Substance: EXEMESTANE
     Indication: BREAST CANCER
     Dosage: 25 MG, UNK
  2. AFINITOR [Suspect]
     Active Substance: EVEROLIMUS
     Indication: BREAST CANCER
     Dosage: 10 MG, UNK
  3. LUMIGAN [Concomitant]
     Active Substance: BIMATOPROST
     Dosage: 1 GTT, UNK
  4. SYNTHROID [Concomitant]
     Active Substance: LEVOTHYROXINE SODIUM
     Dosage: 0.025 MG, UNK
  5. AREDIA [Concomitant]
     Active Substance: PAMIDRONATE DISODIUM
  6. TESETAXEL [Suspect]
     Active Substance: TESETAXEL
     Dosage: 40 MG, UNK
     Route: 048
  7. PAMIDRONATE DISODIUM. [Concomitant]
     Active Substance: PAMIDRONATE DISODIUM
     Dosage: 90 MG, UNK
  8. ERGOCALCIFEROL. [Concomitant]
     Active Substance: ERGOCALCIFEROL
     Dosage: 400 IU, UNK
  9. IRBESARTAN. [Concomitant]
     Active Substance: IRBESARTAN
     Dosage: 150 MG, UNK
  10. TESETAXEL [Suspect]
     Active Substance: TESETAXEL
     Dosage: 35 MG, UNK
     Route: 048
  11. TEVA-EXEMESTANE [Suspect]
     Active Substance: EXEMESTANE
     Dosage: 25 MG, UNK
  12. CAPECITABINE. [Suspect]
     Active Substance: CAPECITABINE
     Dosage: 1000 MG, UNK
     Route: 048
  13. GLUCOPHAGE [Concomitant]
     Active Substance: METFORMIN HYDROCHLORIDE
  14. HYDROCHLOROTHIAZIDE. [Concomitant]
     Active Substance: HYDROCHLOROTHIAZIDE
     Dosage: 12.5 MG, UNK
  15. PREDNISOLONE SODIUM PHOSPHATE. [Concomitant]
     Active Substance: PREDNISOLONE SODIUM PHOSPHATE
     Dosage: 5 ML, UNK
  16. CAPECITABINE. [Suspect]
     Active Substance: CAPECITABINE
     Dosage: 1150 MG, UNK
     Route: 048
  17. CALCIUM CARBONATE. [Concomitant]
     Active Substance: CALCIUM CARBONATE
     Dosage: 500 MG, UNK
  18. TYLENOL [Concomitant]
     Active Substance: ACETAMINOPHEN
     Dosage: 1000 MG, UNK

REACTIONS (12)
  - Dysgeusia [Not Recovered/Not Resolved]
  - Vomiting [Not Recovered/Not Resolved]
  - Abdominal pain [Not Recovered/Not Resolved]
  - Oedema peripheral [Not Recovered/Not Resolved]
  - Diarrhoea [Not Recovered/Not Resolved]
  - Dehydration [Not Recovered/Not Resolved]
  - Dysuria [Not Recovered/Not Resolved]
  - Hyperglycaemia [Not Recovered/Not Resolved]
  - Nail disorder [Not Recovered/Not Resolved]
  - Hypocalcaemia [Not Recovered/Not Resolved]
  - Hypokalaemia [Not Recovered/Not Resolved]
  - Pneumonitis [Not Recovered/Not Resolved]
